FAERS Safety Report 8430110-3 (Version None)
Quarter: 2012Q2

REPORT INFORMATION
  Report Type: 
  Country: None (occurrence: None)
  Receive Date: 20120612
  Receipt Date: 20120604
  Transmission Date: 20120825
  Serious: Yes (Hospitalization, Other)
  Sender: FDA-Public Use
  Company Number: US-US-EMD SERONO, INC.-7135067

PATIENT
  Sex: Female

DRUGS (1)
  1. REBIF [Suspect]
     Indication: MULTIPLE SCLEROSIS
     Route: 058
     Dates: start: 20120323

REACTIONS (7)
  - BLOOD PRESSURE INCREASED [None]
  - PELVIC FRACTURE [None]
  - THORACIC VERTEBRAL FRACTURE [None]
  - PALPITATIONS [None]
  - MIGRAINE [None]
  - FALL [None]
  - DEPRESSION [None]
